FAERS Safety Report 5913511-4 (Version None)
Quarter: 2008Q4

REPORT INFORMATION
  Report Type: 
  Country: None (occurrence: None)
  Receive Date: 20081006
  Receipt Date: 20081002
  Transmission Date: 20090506
  Serious: Yes (Other)
  Sender: FDA-Public Use
  Company Number: S07-USA-06414-01

PATIENT
  Age: 18 Year
  Sex: Female

DRUGS (13)
  1. CELEXA [Suspect]
     Indication: ANXIETY
     Dosage: 10 MG (10 MG, ONCE A DAY), ORAL
     Route: 048
     Dates: start: 20080425, end: 20080601
  2. CELEXA [Suspect]
     Indication: DEPRESSION
     Dosage: 10 MG (10 MG, ONCE A DAY), ORAL
     Route: 048
     Dates: start: 20080425, end: 20080601
  3. CELEXA [Suspect]
     Indication: ANXIETY
     Dosage: 10 MG (10 MG, ONCE A DAY), ORAL
     Route: 048
     Dates: start: 20071218, end: 20080101
  4. CELEXA [Suspect]
     Indication: DEPRESSION
     Dosage: 10 MG (10 MG, ONCE A DAY), ORAL
     Route: 048
     Dates: start: 20071218, end: 20080101
  5. CELEXA [Suspect]
     Indication: ANXIETY
     Dosage: 20 MG (20 MG, ONCE A DAY), ORAL
     Route: 048
     Dates: start: 20080101, end: 20080424
  6. CELEXA [Suspect]
     Indication: DEPRESSION
     Dosage: 20 MG (20 MG, ONCE A DAY), ORAL
     Route: 048
     Dates: start: 20080101, end: 20080424
  7. ST. JOHN'S WORT [Suspect]
     Indication: ANXIETY
     Dates: start: 20071221, end: 20080107
  8. ST. JOHN'S WORT [Suspect]
     Indication: DEPRESSION
     Dates: start: 20071221, end: 20080107
  9. ST. JOHN'S WORT [Suspect]
     Indication: ANXIETY
     Dosage: 900 MG (900 MG, ONCE A DAY), ORAL
     Route: 048
     Dates: start: 20070901, end: 20071220
  10. ST. JOHN'S WORT [Suspect]
     Indication: DEPRESSION
     Dosage: 900 MG (900 MG, ONCE A DAY), ORAL
     Route: 048
     Dates: start: 20070901, end: 20071220
  11. WELLBUTRIN [Suspect]
     Indication: ANXIETY
     Dosage: 150 MG (150 MG, ONCE A DAY), ORAL
     Route: 048
     Dates: start: 20080201
  12. WELLBUTRIN [Suspect]
     Indication: DEPRESSION
     Dosage: 150 MG (150 MG, ONCE A DAY), ORAL
     Route: 048
     Dates: start: 20080201
  13. MULTI-VITAMIN [Concomitant]

REACTIONS (20)
  - ABNORMAL BEHAVIOUR [None]
  - AGITATION [None]
  - ANXIETY [None]
  - CONTUSION [None]
  - DIZZINESS [None]
  - DRUG INTERACTION [None]
  - DRUG WITHDRAWAL SYNDROME [None]
  - EMOTIONAL DISORDER [None]
  - FIGHT IN SCHOOL [None]
  - HEADACHE [None]
  - HOT FLUSH [None]
  - HYPERHIDROSIS [None]
  - MUSCULAR WEAKNESS [None]
  - NAUSEA [None]
  - PANIC ATTACK [None]
  - PARAESTHESIA [None]
  - RESTLESSNESS [None]
  - SCRATCH [None]
  - SELF INJURIOUS BEHAVIOUR [None]
  - SUICIDAL IDEATION [None]
